FAERS Safety Report 13233851 (Version 2)
Quarter: 2017Q2

REPORT INFORMATION
  Report Type: Spontaneous
  Country: US (occurrence: US)
  Receive Date: 20170215
  Receipt Date: 20170412
  Transmission Date: 20170830
  Serious: Yes (Life-Threatening, Hospitalization, Other)
  Sender: FDA-Public Use
  Company Number: US-ACCORD-048183

PATIENT
  Age: 53 Year
  Sex: Male

DRUGS (7)
  1. LEVOFLOXACIN/LEVOFLOXACIN MESYLATE [Concomitant]
     Indication: ANTIBIOTIC PROPHYLAXIS
  2. DASATINIB [Suspect]
     Active Substance: DASATINIB
     Indication: ACUTE LYMPHOCYTIC LEUKAEMIA
  3. ACICLOVIR [Concomitant]
     Active Substance: ACYCLOVIR
     Indication: ANTIBIOTIC PROPHYLAXIS
  4. ETOPOSIDE. [Suspect]
     Active Substance: ETOPOSIDE
     Indication: ACUTE LYMPHOCYTIC LEUKAEMIA
  5. CYTARABINE/CYTARABINE HYDROCHLORIDE/CYTARABINE OCFOSFATE [Suspect]
     Active Substance: CYTARABINE
     Indication: ACUTE LYMPHOCYTIC LEUKAEMIA
  6. SULPHAX [Concomitant]
     Indication: ANTIBIOTIC PROPHYLAXIS
  7. CASPOFUNGIN [Concomitant]
     Active Substance: CASPOFUNGIN
     Indication: ANTIBIOTIC PROPHYLAXIS

REACTIONS (7)
  - Mucosal inflammation [Recovered/Resolved]
  - Meningitis enterococcal [Unknown]
  - Diarrhoea [Recovered/Resolved]
  - Febrile neutropenia [Unknown]
  - Pancytopenia [Unknown]
  - Aphasia [None]
  - Off label use [Unknown]
